FAERS Safety Report 16099298 (Version 1)
Quarter: 2019Q1

REPORT INFORMATION
  Report Type: Spontaneous
  Country: US (occurrence: US)
  Receive Date: 20190321
  Receipt Date: 20190321
  Transmission Date: 20190418
  Serious: Yes (Other)
  Sender: FDA-Public Use
  Company Number: US-PFIZER INC-2019121107

PATIENT
  Age: 55 Year
  Sex: Female
  Weight: 77.11 kg

DRUGS (5)
  1. HUMIRA [Suspect]
     Active Substance: ADALIMUMAB
     Indication: RHEUMATOID ARTHRITIS
     Dosage: UNK
     Route: 058
  2. XELJANZ XR [Suspect]
     Active Substance: TOFACITINIB CITRATE
     Indication: RHEUMATOID ARTHRITIS
     Dosage: 11 MG, 1X/DAY
     Route: 048
     Dates: start: 2017, end: 201803
  3. METHOTREXATE. [Suspect]
     Active Substance: METHOTREXATE
     Indication: RHEUMATOID ARTHRITIS
     Dosage: 15 MG, WEEKLY (6 TABLETS TAKEN BY MOUTH EVERY SATURDAY)
     Route: 048
     Dates: start: 1977
  4. METOPROLOL TARTRATE. [Concomitant]
     Active Substance: METOPROLOL TARTRATE
     Indication: ATRIAL FIBRILLATION
     Dosage: 25 MG, UNK
     Route: 048
     Dates: start: 2015
  5. WARFARIN SODIUM [WARFARIN SODIUM CLATHRATE] [Concomitant]
     Indication: ATRIAL FIBRILLATION
     Dosage: 5 MG, 1X/DAY (1 IN 1 D)
     Route: 048
     Dates: start: 2015

REACTIONS (1)
  - Upper respiratory tract infection [Unknown]
